FAERS Safety Report 4359942-8 (Version None)
Quarter: 2004Q2

REPORT INFORMATION
  Report Type: 
  Country: None (occurrence: None)
  Receive Date: 20040518
  Receipt Date: 20031001
  Transmission Date: 20050107
  Serious: Yes (Hospitalization, Disabling)
  Sender: FDA-Public Use
  Company Number: US-MERCK-0310USA00147

PATIENT
  Age: 44 Year
  Sex: Male
  Weight: 87 kg

DRUGS (4)
  1. NORVASC [Concomitant]
     Route: 065
  2. ATENOLOL [Concomitant]
     Route: 065
  3. VIOXX [Suspect]
     Indication: BACK PAIN
     Route: 048
     Dates: start: 20001001, end: 20010821
  4. VIOXX [Suspect]
     Indication: ARTHRALGIA
     Route: 048
     Dates: start: 20001001, end: 20010821

REACTIONS (13)
  - BLOOD PRESSURE FLUCTUATION [None]
  - BRADYCARDIA [None]
  - CONJUNCTIVAL HAEMORRHAGE [None]
  - CORONARY ARTERY DISEASE [None]
  - HYPERLIPIDAEMIA [None]
  - INTERMITTENT CLAUDICATION [None]
  - MEMORY IMPAIRMENT [None]
  - MYOCARDIAL INFARCTION [None]
  - PERIPHERAL VASCULAR DISORDER [None]
  - PHARYNGITIS [None]
  - POLYDIPSIA [None]
  - UPPER RESPIRATORY TRACT INFECTION [None]
  - VENTRICULAR TACHYCARDIA [None]
